FAERS Safety Report 7089924-7 (Version None)
Quarter: 2010Q4

REPORT INFORMATION
  Report Type: 
  Country: None (occurrence: None)
  Receive Date: 20101108
  Receipt Date: 20101028
  Transmission Date: 20110411
  Serious: Yes (Other)
  Sender: FDA-Public Use
  Company Number: DE-AMGEN-DEUCT2010000060

PATIENT

DRUGS (3)
  1. ENBREL [Suspect]
     Indication: ANKYLOSING SPONDYLITIS
     Route: 058
     Dates: start: 20050926
  2. VOLTAREN [Concomitant]
     Dosage: UNKNOWN
  3. PRED FORTE [Suspect]
     Dosage: UNK
     Dates: start: 20100901

REACTIONS (4)
  - CONDITION AGGRAVATED [None]
  - GLAUCOMA [None]
  - IRIDOCYCLITIS [None]
  - IRITIS [None]
